FAERS Safety Report 21115686 (Version 1)
Quarter: 2022Q3

REPORT INFORMATION
  Report Type: Spontaneous
  Country: US (occurrence: US)
  Receive Date: 20220721
  Receipt Date: 20220721
  Transmission Date: 20221027
  Serious: No
  Sender: FDA-Public Use
  Company Number: US-SA-SAC20220718002200

PATIENT
  Sex: Female
  Weight: 87 kg

DRUGS (17)
  1. AUBAGIO [Suspect]
     Active Substance: TERIFLUNOMIDE
     Indication: Multiple sclerosis
     Dosage: 14 MG, QD
     Route: 048
     Dates: start: 202101
  2. FLUZONE QUADRIVALENT NOS [Concomitant]
     Active Substance: INFLUENZA A VIRUS A/CALIFORNIA/7/2009 X-179A (H1N1) ANTIGEN (FORMALDEHYDE INACTIVATED)\INFLUENZA A V
  3. PFIZER-BIONTECH COVID-19 VACCINE [Concomitant]
     Active Substance: TOZINAMERAN
  4. IBUPROFEN [Concomitant]
     Active Substance: IBUPROFEN
  5. ATENOLOL [Concomitant]
     Active Substance: ATENOLOL
  6. LYRICA [Concomitant]
     Active Substance: PREGABALIN
  7. CYMBALTA [Concomitant]
     Active Substance: DULOXETINE HYDROCHLORIDE
  8. VALTREX [Concomitant]
     Active Substance: VALACYCLOVIR HYDROCHLORIDE
  9. METHOCARBAMOL [Concomitant]
     Active Substance: METHOCARBAMOL
  10. KEPPRA [Concomitant]
     Active Substance: LEVETIRACETAM
  11. VITAMIN D3 [Concomitant]
     Active Substance: CHOLECALCIFEROL
  12. PRAZOSIN HYDROCHLORIDE [Concomitant]
     Active Substance: PRAZOSIN HYDROCHLORIDE
  13. WELLBUTRIN XL [Concomitant]
     Active Substance: BUPROPION HYDROCHLORIDE
     Dosage: 300MG QD
  14. PREGABALIN [Concomitant]
     Active Substance: PREGABALIN
  15. ATORVASTATIN CALCIUM [Concomitant]
     Active Substance: ATORVASTATIN CALCIUM
  16. MECLIZINE HYDROCHLORIDE [Concomitant]
     Active Substance: MECLIZINE HYDROCHLORIDE
  17. EQUATE COMPLETE MULTIVITAMIN WOMEN 50+ [Concomitant]

REACTIONS (1)
  - Surgery [Unknown]
